FAERS Safety Report 4882509-X (Version None)
Quarter: 2006Q1

REPORT INFORMATION
  Report Type: 
  Country: None (occurrence: None)
  Receive Date: 20060113
  Receipt Date: 20060105
  Transmission Date: 20060701
  Serious: Yes (Other)
  Sender: FDA-Public Use
  Company Number: 2006003360

PATIENT
  Age: 52 Year
  Sex: Male
  Weight: 56.6996 kg

DRUGS (3)
  1. DILANTIN KAPSEAL [Suspect]
     Indication: CONVULSION
     Dosage: 300 MG (100 MG, 1 MORNING, 2 EVENING), ORAL
     Route: 048
     Dates: start: 19810101
  2. DEPAKOTE [Concomitant]
  3. PHENOBARBITAL TAB [Concomitant]

REACTIONS (1)
  - GRAND MAL CONVULSION [None]
